FAERS Safety Report 23090466 (Version 1)
Quarter: 2023Q4

REPORT INFORMATION
  Report Type: Spontaneous
  Country: FR (occurrence: FR)
  Receive Date: 20231020
  Receipt Date: 20231020
  Transmission Date: 20240110
  Serious: Yes (Death)
  Sender: FDA-Public Use
  Company Number: None

PATIENT
  Age: 82 Year
  Sex: Female
  Weight: 76 kg

DRUGS (8)
  1. AMIODARONE [Suspect]
     Active Substance: AMIODARONE
     Indication: Atrial fibrillation
     Dosage: 200 MILLIGRAM, QD
     Route: 048
     Dates: start: 20230731
  2. VALSARTAN [Concomitant]
     Active Substance: VALSARTAN
     Dosage: UNK
     Route: 065
  3. ESOMEPRAZOLE [Concomitant]
     Active Substance: ESOMEPRAZOLE
     Dosage: UNK
     Route: 065
  4. APIXABAN [Concomitant]
     Active Substance: APIXABAN
     Dosage: UNK
     Route: 065
  5. SACUBITRIL [Concomitant]
     Active Substance: SACUBITRIL
     Dosage: UNK
     Route: 065
  6. NEBIVOLOL [Concomitant]
     Active Substance: NEBIVOLOL
     Dosage: UNK
     Route: 065
  7. FLUVASTATIN SODIUM [Concomitant]
     Active Substance: FLUVASTATIN SODIUM
     Dosage: UNK
     Route: 065
  8. DAPAGLIFLOZIN [Concomitant]
     Active Substance: DAPAGLIFLOZIN
     Dosage: UNK
     Route: 065

REACTIONS (1)
  - Interstitial lung disease [Fatal]

NARRATIVE: CASE EVENT DATE: 20230912
